FAERS Safety Report 12331952 (Version 1)
Quarter: 2016Q2

REPORT INFORMATION
  Report Type: Spontaneous
  Country: US (occurrence: US)
  Receive Date: 20160504
  Receipt Date: 20160504
  Transmission Date: 20160815
  Serious: No
  Sender: FDA-Public Use
  Company Number: US-PFIZER INC-2016231945

PATIENT
  Age: 62 Year
  Sex: Female

DRUGS (6)
  1. CALTRATE [Concomitant]
     Active Substance: CALCIUM CARBONATE
  2. CELEXA [Concomitant]
     Active Substance: CITALOPRAM HYDROBROMIDE
  3. IBRANCE [Suspect]
     Active Substance: PALBOCICLIB
     Indication: BREAST CANCER FEMALE
     Dosage: 100 MG, TAKE 1 CAPSULE FOR 21 DAYS ON AND 7 DAYS OFF
     Route: 048
     Dates: end: 20160414
  4. LIPITOR [Concomitant]
     Active Substance: ATORVASTATIN CALCIUM
  5. SYNTHROID [Concomitant]
     Active Substance: LEVOTHYROXINE SODIUM
  6. OMEPRAZOLE. [Concomitant]
     Active Substance: OMEPRAZOLE

REACTIONS (2)
  - Breast cancer female [Unknown]
  - Disease progression [Unknown]
